FAERS Safety Report 19658104 (Version 1)
Quarter: 2021Q3

REPORT INFORMATION
  Report Type: Spontaneous
  Country: US (occurrence: US)
  Receive Date: 20210804
  Receipt Date: 20210804
  Transmission Date: 20211014
  Serious: Yes (Other)
  Sender: FDA-Public Use
  Company Number: US-SA-2021SA245348

PATIENT
  Age: 49 Year
  Sex: Male

DRUGS (3)
  1. VANDETANIB. [Suspect]
     Active Substance: VANDETANIB
     Indication: MEDULLARY THYROID CANCER
     Route: 065
  2. CABOZANTINIB [Concomitant]
     Active Substance: CABOZANTINIB
     Indication: MEDULLARY THYROID CANCER
     Route: 065
  3. SORAFENIB [Concomitant]
     Active Substance: SORAFENIB
     Indication: MEDULLARY THYROID CANCER
     Route: 065

REACTIONS (5)
  - Disease progression [Unknown]
  - Fatigue [Unknown]
  - Ascites [Unknown]
  - Performance status decreased [Unknown]
  - Hepatomegaly [Unknown]
